FAERS Safety Report 9145999 (Version 2)
Quarter: 2013Q1

REPORT INFORMATION
  Report Type: Spontaneous
  Country: US (occurrence: US)
  Receive Date: 20130307
  Receipt Date: 20130314
  Transmission Date: 20140127
  Serious: No
  Sender: FDA-Public Use
  Company Number: US-009507513-1303USA002255

PATIENT
  Age: 47 Year
  Sex: Female

DRUGS (1)
  1. PROVENTIL [Suspect]
     Dosage: 2 DF, Q6H INHALER (EA) 90
     Route: 055
     Dates: start: 20130103

REACTIONS (2)
  - Dyspnoea [Recovered/Resolved]
  - Product packaging quantity issue [Unknown]
